FAERS Safety Report 9536706 (Version 1)
Quarter: 2013Q3

REPORT INFORMATION
  Report Type: Spontaneous
  Country: FR (occurrence: FR)
  Receive Date: 20130919
  Receipt Date: 20130919
  Transmission Date: 20140515
  Serious: Yes (Other)
  Sender: FDA-Public Use
  Company Number: FR-PFIZER INC-2013264749

PATIENT
  Sex: 0

DRUGS (1)
  1. INLYTA [Suspect]
     Indication: RENAL CANCER

REACTIONS (1)
  - Convulsion [Unknown]
